FAERS Safety Report 20162930 (Version 1)
Quarter: 2021Q4

REPORT INFORMATION
  Report Type: Spontaneous
  Country: CL (occurrence: CL)
  Receive Date: 20211209
  Receipt Date: 20211209
  Transmission Date: 20220303
  Serious: Yes (Life-Threatening, Other)
  Sender: FDA-Public Use
  Company Number: CL-SUN PHARMACEUTICAL INDUSTRIES LTD-2021RR-319974

PATIENT
  Age: 36 Year
  Sex: Male

DRUGS (6)
  1. RISPERIDONE [Suspect]
     Active Substance: RISPERIDONE
     Indication: COVID-19 pneumonia
     Dosage: 3 MILLIGRAM, DAILY
     Route: 065
  2. QUETIAPINE [Suspect]
     Active Substance: QUETIAPINE
     Indication: COVID-19 pneumonia
     Dosage: 600 MILLIGRAM, DAILY
     Route: 065
  3. BISOPROLOL [Suspect]
     Active Substance: BISOPROLOL
     Indication: COVID-19 pneumonia
     Dosage: UNK
     Route: 065
  4. HALOPERIDOL [Suspect]
     Active Substance: HALOPERIDOL
     Indication: COVID-19 pneumonia
     Dosage: 200 MILLIGRAM, DAILY
     Route: 065
  5. CLONIDINE [Suspect]
     Active Substance: CLONIDINE
     Indication: COVID-19 pneumonia
     Dosage: UNK
     Route: 065
  6. DEXMEDETOMIDINE [Suspect]
     Active Substance: DEXMEDETOMIDINE
     Indication: COVID-19 pneumonia
     Dosage: UNK
     Route: 065

REACTIONS (1)
  - Malignant catatonia [Unknown]
